FAERS Safety Report 23613549 (Version 1)
Quarter: 2024Q1

REPORT INFORMATION
  Report Type: Spontaneous
  Country: IL (occurrence: IL)
  Receive Date: 20240309
  Receipt Date: 20240309
  Transmission Date: 20240410
  Serious: Yes (Other)
  Sender: FDA-Public Use
  Company Number: IL-AMGEN-ISRSP2024045964

PATIENT
  Sex: Male

DRUGS (2)
  1. BEVACIZUMAB [Suspect]
     Active Substance: BEVACIZUMAB
     Indication: Diabetic retinal oedema
     Dosage: LOADING DOSE, Q3MO
  2. AFLIBERCEPT [Suspect]
     Active Substance: AFLIBERCEPT
     Indication: Diabetic retinal oedema
     Dosage: LOADING DOSE, Q3MO

REACTIONS (4)
  - Endophthalmitis [Unknown]
  - Staphylococcal infection [Unknown]
  - Off label use [Unknown]
  - Incorrect route of product administration [Unknown]
